FAERS Safety Report 10675328 (Version 3)
Quarter: 2015Q1

REPORT INFORMATION
  Report Type: Report from Study
  Country: FR (occurrence: FR)
  Receive Date: 20141224
  Receipt Date: 20150303
  Transmission Date: 20150720
  Serious: Yes (Hospitalization, Disabling)
  Sender: FDA-Public Use
  Company Number: FR-ASTELLAS-2014US020327

PATIENT
  Age: 49 Year
  Sex: Male

DRUGS (1)
  1. TACROLIMUS. [Suspect]
     Active Substance: TACROLIMUS
     Indication: PRODUCT USED FOR UNKNOWN INDICATION
     Dosage: UNK UNK, UNKNOWN FREQ.
     Route: 065
     Dates: start: 20120729, end: 20121025

REACTIONS (3)
  - Transplantation complication [Recovered/Resolved with Sequelae]
  - Pyelonephritis acute [Recovered/Resolved with Sequelae]
  - Removal of transplanted organ [Recovered/Resolved with Sequelae]

NARRATIVE: CASE EVENT DATE: 20121025
